FAERS Safety Report 12602297 (Version 1)
Quarter: 2016Q3

REPORT INFORMATION
  Report Type: Spontaneous
  Country: US (occurrence: None)
  Receive Date: 20160727
  Receipt Date: 20160727
  Transmission Date: 20161109
  Serious: Yes (Hospitalization)
  Sender: FDA-Public Use
  Company Number: None

PATIENT
  Age: 99 Year
  Sex: Male
  Weight: 59.3 kg

DRUGS (2)
  1. GLIPIZIDE. [Suspect]
     Active Substance: GLIPIZIDE
     Indication: DIABETES MELLITUS
     Route: 048
     Dates: start: 20060509, end: 20160705
  2. METFORMIN [Suspect]
     Active Substance: METFORMIN HYDROCHLORIDE
     Indication: DIABETES MELLITUS
     Route: 048
     Dates: start: 20120905, end: 20160705

REACTIONS (5)
  - Dehydration [None]
  - Back pain [None]
  - Hypoglycaemia [None]
  - Acute kidney injury [None]
  - Diarrhoea [None]

NARRATIVE: CASE EVENT DATE: 20160706
